FAERS Safety Report 21186936 (Version 2)
Quarter: 2022Q3

REPORT INFORMATION
  Report Type: Spontaneous
  Country: US (occurrence: US)
  Receive Date: 20220808
  Receipt Date: 20220916
  Transmission Date: 20221026
  Serious: No
  Sender: FDA-Public Use
  Company Number: US-BRISTOL-MYERS SQUIBB COMPANY-2022-086514

PATIENT
  Age: 78 Year
  Sex: Male

DRUGS (1)
  1. REVLIMID [Suspect]
     Active Substance: LENALIDOMIDE
     Indication: Diffuse large B-cell lymphoma
     Dosage: EVERY DAY ON DAYS 1-21 THEN OFF FOR 7 DAYS.
     Route: 048
     Dates: start: 20220722

REACTIONS (5)
  - Pruritus [Recovered/Resolved]
  - Rash macular [Unknown]
  - Intentional product use issue [Unknown]
  - Arthritis [Unknown]
  - Eczema [Unknown]
